FAERS Safety Report 23044455 (Version 1)
Quarter: 2023Q4

REPORT INFORMATION
  Report Type: Spontaneous
  Country: FR (occurrence: FR)
  Receive Date: 20231009
  Receipt Date: 20231009
  Transmission Date: 20240110
  Serious: Yes (Hospitalization, Other)
  Sender: FDA-Public Use
  Company Number: None

PATIENT
  Age: 49 Year
  Sex: Male
  Weight: 66 kg

DRUGS (11)
  1. BIKTARVY [Suspect]
     Active Substance: BICTEGRAVIR SODIUM\EMTRICITABINE\TENOFOVIR ALAFENAMIDE FUMARATE
     Indication: HIV infection
     Dosage: 1 DOSAGE FORM, QD (50 MG/200 MG/25 MG)
     Route: 048
     Dates: start: 202301, end: 20230208
  2. VALGANCICLOVIR [Suspect]
     Active Substance: VALGANCICLOVIR
     Indication: Herpes simplex reactivation
     Dosage: 1800 MG, QD
     Route: 048
     Dates: start: 202301, end: 20230206
  3. BACTRIM [Suspect]
     Active Substance: SULFAMETHOXAZOLE\TRIMETHOPRIM
     Indication: Cerebral toxoplasmosis
     Dosage: 6 DOSAGE FORM, QD
     Route: 048
     Dates: start: 20230104, end: 20230215
  4. PREDNISONE [Concomitant]
     Active Substance: PREDNISONE
  5. ZOPICLONE [Concomitant]
     Active Substance: ZOPICLONE
  6. ACETYLLEUCINE [Concomitant]
     Active Substance: ACETYLLEUCINE
  7. POLYETHYLENE GLYCOL 3350 [Concomitant]
     Active Substance: POLYETHYLENE GLYCOL 3350
  8. ACETAMINOPHEN [Concomitant]
     Active Substance: ACETAMINOPHEN
  9. FUNGIZONE [Concomitant]
     Active Substance: AMPHOTERICIN B
  10. ONDANSETRON [Concomitant]
     Active Substance: ONDANSETRON
  11. FOLIC ACID [Concomitant]
     Active Substance: FOLIC ACID

REACTIONS (1)
  - Pancytopenia [Recovered/Resolved]

NARRATIVE: CASE EVENT DATE: 20230206
